FAERS Safety Report 14512494 (Version 1)
Quarter: 2018Q1

REPORT INFORMATION
  Report Type: Spontaneous
  Country: US (occurrence: US)
  Receive Date: 20180209
  Receipt Date: 20180209
  Transmission Date: 20180509
  Serious: No
  Sender: FDA-Public Use
  Company Number: US-ALLERGAN-1715692US

PATIENT
  Sex: Female
  Weight: 61.22 kg

DRUGS (4)
  1. RESTASIS [Suspect]
     Active Substance: CYCLOSPORINE
     Indication: DRY EYE
     Dosage: UNK UNK, BID
     Route: 047
     Dates: end: 201701
  2. VITAMIN D                          /00107901/ [Concomitant]
     Active Substance: ERGOCALCIFEROL
     Indication: HYPERTENSION
     Dosage: UNK UNK, BID
  3. ASPIRIN. [Concomitant]
     Active Substance: ASPIRIN
     Indication: HYPERTENSION
  4. FISH OIL [Concomitant]
     Active Substance: FISH OIL
     Indication: HYPERTENSION

REACTIONS (2)
  - Eye pain [Not Recovered/Not Resolved]
  - Drug dose omission [Unknown]
